FAERS Safety Report 7788085-6 (Version None)
Quarter: 2011Q3

REPORT INFORMATION
  Report Type: 
  Country: None (occurrence: None)
  Receive Date: 20110927
  Receipt Date: 20110912
  Transmission Date: 20111222
  Serious: Yes (Hospitalization)
  Sender: FDA-Public Use
  Company Number: DSJ-2011-20242

PATIENT
  Age: 7 Decade
  Sex: Male

DRUGS (4)
  1. BENICAR HCT [Suspect]
     Indication: HYPERTENSION
     Dosage: 40/25 MG (1 IN 1 D),PER ORAL
     Route: 048
     Dates: start: 20090101, end: 20110801
  2. MEDICINES FOR DIABETES [Concomitant]
  3. MEDICINES FOR HYPERTRIGLYCERIDEMIA [Concomitant]
  4. MEDICINES FOR HYPERCHOLESTEROLEMIA [Concomitant]

REACTIONS (1)
  - ISCHAEMIA [None]
